FAERS Safety Report 26079493 (Version 1)
Quarter: 2025Q4

REPORT INFORMATION
  Report Type: Spontaneous
  Country: US (occurrence: US)
  Receive Date: 20251123
  Receipt Date: 20251123
  Transmission Date: 20260117
  Serious: No
  Sender: GALPHARM INTERNATIONAL
  Company Number: US-PERRIGO-25US012060

PATIENT
  Sex: Female

DRUGS (1)
  1. OPILL [Suspect]
     Active Substance: NORGESTREL
     Indication: Contraception
     Dosage: UNKNOWN, UNKNOWN
     Route: 048
     Dates: start: 2024

REACTIONS (10)
  - Weight increased [Unknown]
  - Acne [Unknown]
  - Emotional disorder [Unknown]
  - Dairy intolerance [Unknown]
  - Constipation [Unknown]
  - Diarrhoea [Unknown]
  - Vaginal haemorrhage [Unknown]
  - Increased appetite [Unknown]
  - Abdominal pain upper [Unknown]
  - Abdominal distension [Unknown]
